FAERS Safety Report 19272296 (Version 2)
Quarter: 2021Q3

REPORT INFORMATION
  Report Type: Spontaneous
  Country: BE (occurrence: BE)
  Receive Date: 20210519
  Receipt Date: 20210703
  Transmission Date: 20211014
  Serious: Yes (Life-Threatening, Hospitalization, Other)
  Sender: FDA-Public Use
  Company Number: BE-AMGEN-BELSP2021068172

PATIENT
  Age: 73 Year
  Sex: Female
  Weight: 88 kg

DRUGS (15)
  1. DEXAMETHASONE. [Suspect]
     Active Substance: DEXAMETHASONE
     Indication: PLASMA CELL MYELOMA
     Dosage: UNK
     Route: 042
     Dates: start: 20210409, end: 20210416
  2. CALCIUM [Concomitant]
     Active Substance: CALCIUM
     Dosage: UNK UNK, QD (1 X/D)
  3. DUROGESIC [Concomitant]
     Active Substance: FENTANYL
     Dosage: 50 MICROGRAM (1 PATCH/72 HRS)
  4. L?THYROXINE [LEVOTHYROXINE] [Concomitant]
     Active Substance: LEVOTHYROXINE
     Dosage: 112.5 MICROGRAM
  5. PANTOMED [DEXPANTHENOL] [Concomitant]
     Dosage: 40 MILLIGRAM, QD (1 TAB 1 X/D MORNINGS)
  6. SERLAIN [SERTRALINE] [Concomitant]
     Dosage: 50 MILLIGRAM, QD (1 X/D MORNINGS)
  7. KYPROLIS [Suspect]
     Active Substance: CARFILZOMIB
     Dosage: 70 MILLIGRAM/SQ. METER ON WEEK 2
     Route: 042
     Dates: end: 20210416
  8. BISOPROLOL [Concomitant]
     Active Substance: BISOPROLOL
     Indication: ATRIAL FIBRILLATION
     Dosage: 2.5 MILLIGRAM, QD (1 TAB 1 X/D EVENINGS)
  9. KYPROLIS [Suspect]
     Active Substance: CARFILZOMIB
     Indication: PLASMA CELL MYELOMA
     Dosage: 20 MILLIGRAM/SQ. METER ON WEEK 1
     Route: 065
     Dates: start: 20210409
  10. TRADONAL [Concomitant]
     Active Substance: TRAMADOL HYDROCHLORIDE
     Dosage: 100 MILLIGRAM 1 TAB 2 X/D MORNINGS AND EVENING
  11. APOCARD RETARD [Concomitant]
     Dosage: 200 MILLIGRAM, QD (1 TAB 1 X/D MORNINGS)
  12. TEMESTA [LORAZEPAM] [Concomitant]
     Active Substance: LORAZEPAM
     Dosage: 2.5 MILLIGRAM
  13. L?THYROXINE [LEVOTHYROXINE] [Concomitant]
     Active Substance: LEVOTHYROXINE
     Dosage: 87.5 MICROGRAM, QD (1 X /D MORNINGS)
  14. LYRICA [Concomitant]
     Active Substance: PREGABALIN
     Dosage: 150 MILLIGRAM 1 TAB 2 X/D MORNINGS AND EVENINGS
  15. COVERSYL [PERINDOPRIL ARGININE] [Concomitant]
     Active Substance: PERINDOPRIL ARGININE
     Dosage: 5 MILLIGRAM (1/2 TAB 1 X/D MORNINGS)

REACTIONS (12)
  - Leukopenia [Unknown]
  - Hypothyroidism [Unknown]
  - Atrial fibrillation [Recovered/Resolved]
  - Hypophosphataemia [Unknown]
  - Off label use [Unknown]
  - Escherichia pyelonephritis [Unknown]
  - Pericardial effusion [Unknown]
  - Anaemia macrocytic [Unknown]
  - Thrombocytopenia [Unknown]
  - Tumour lysis syndrome [Recovered/Resolved]
  - Acute kidney injury [Unknown]
  - Neutropenia [Unknown]

NARRATIVE: CASE EVENT DATE: 202104
